FAERS Safety Report 25527615 (Version 1)
Quarter: 2025Q3

REPORT INFORMATION
  Report Type: Spontaneous
  Country: JP (occurrence: JP)
  Receive Date: 20250708
  Receipt Date: 20250708
  Transmission Date: 20251020
  Serious: Yes (Other)
  Sender: EMD SERONO INC
  Company Number: JP-Merck Healthcare KGaA-2025034058

PATIENT
  Age: 82 Year
  Sex: Female
  Weight: 50 kg

DRUGS (13)
  1. METGLUCO [Suspect]
     Active Substance: METFORMIN HYDROCHLORIDE
     Indication: Product used for unknown indication
     Dates: start: 2016, end: 2018
  2. AMLODIPINE BESYLATE [Suspect]
     Active Substance: AMLODIPINE BESYLATE
     Indication: Product used for unknown indication
  3. REPAGLINIDE [Suspect]
     Active Substance: REPAGLINIDE
     Indication: Product used for unknown indication
     Dates: start: 202408, end: 202501
  4. REPAGLINIDE [Suspect]
     Active Substance: REPAGLINIDE
     Dates: start: 202501
  5. RYZODEG 70/30 [Concomitant]
     Active Substance: INSULIN ASPART\INSULIN DEGLUDEC
     Indication: Product used for unknown indication
  6. DONEPEZIL HYDROCHLORIDE [Concomitant]
     Active Substance: DONEPEZIL HYDROCHLORIDE
     Indication: Product used for unknown indication
  7. ISOSORBIDE DINITRATE [Concomitant]
     Active Substance: ISOSORBIDE DINITRATE
     Indication: Product used for unknown indication
  8. SAXAGLIPTIN [Concomitant]
     Active Substance: SAXAGLIPTIN
     Indication: Product used for unknown indication
     Dates: start: 2016, end: 2017
  9. OMARIGLIPTIN [Concomitant]
     Active Substance: OMARIGLIPTIN
     Indication: Product used for unknown indication
     Dates: start: 2018, end: 2018
  10. VILDAGLIPTIN [Concomitant]
     Active Substance: VILDAGLIPTIN
     Indication: Product used for unknown indication
     Dates: start: 2018, end: 2023
  11. IPRAGLIFLOZIN L-PROLINE [Concomitant]
     Active Substance: IPRAGLIFLOZIN L-PROLINE
     Indication: Product used for unknown indication
     Dates: start: 2021, end: 2023
  12. TRULICITY [Concomitant]
     Active Substance: DULAGLUTIDE
     Indication: Product used for unknown indication
  13. IMEGLIMIN HYDROCHLORIDE [Concomitant]
     Active Substance: IMEGLIMIN HYDROCHLORIDE
     Indication: Product used for unknown indication
     Dates: start: 202405, end: 202406

REACTIONS (8)
  - Near drowning [Unknown]
  - Peripheral arterial occlusive disease [Unknown]
  - Pulmonary tuberculosis [Unknown]
  - Compression fracture [Unknown]
  - Glycosylated haemoglobin increased [Unknown]
  - Low density lipoprotein increased [Unknown]
  - Haemoglobin decreased [Unknown]
  - Product dose omission in error [Unknown]

NARRATIVE: CASE EVENT DATE: 20160101
